FAERS Safety Report 5632494-8 (Version None)
Quarter: 2008Q1

REPORT INFORMATION
  Report Type: 
  Country: None (occurrence: None)
  Receive Date: 20080131
  Receipt Date: 20071022
  Transmission Date: 20080703
  Serious: No
  Sender: FDA-Public Use
  Company Number: 163-21880-07101294

PATIENT
  Age: 59 Year
  Sex: Male
  Weight: 95.709 kg

DRUGS (5)
  1. REVLIMID [Suspect]
     Indication: MULTIPLE MYELOMA
     Dosage: 20 MG, 2 IN 1 D, ORAL
     Route: 048
     Dates: start: 20070727
  2. LEVOTHYROXINE SODIUM [Concomitant]
  3. LOTENSIN [Concomitant]
  4. ASPIRIN [Concomitant]
  5. AREDIA [Concomitant]

REACTIONS (2)
  - BRADYCARDIA [None]
  - THYROID DISORDER [None]
